FAERS Safety Report 8157917-4 (Version None)
Quarter: 2012Q1

REPORT INFORMATION
  Report Type: 
  Country: None (occurrence: None)
  Receive Date: 20120222
  Receipt Date: 20120215
  Transmission Date: 20120608
  Serious: Yes (Other)
  Sender: FDA-Public Use
  Company Number: PHHY2012FR014355

PATIENT
  Sex: Female
  Weight: 25 kg

DRUGS (3)
  1. EXJADE [Suspect]
     Indication: IRON OVERLOAD
     Dosage: 500 MG, DAILY
     Dates: start: 20100501
  2. EXJADE [Suspect]
     Dosage: 625 MG, DAILY
     Dates: start: 20110701
  3. EXJADE [Suspect]
     Dosage: 750 MG, DAILY
     Dates: start: 20111101

REACTIONS (3)
  - SERUM FERRITIN INCREASED [None]
  - VISUAL ACUITY REDUCED [None]
  - VISUAL IMPAIRMENT [None]
